FAERS Safety Report 11659002 (Version 2)
Quarter: 2015Q4

REPORT INFORMATION
  Report Type: Report from Study
  Country: US (occurrence: US)
  Receive Date: 20151026
  Receipt Date: 20151110
  Transmission Date: 20160304
  Serious: Yes (Hospitalization, Other)
  Sender: FDA-Public Use
  Company Number: US-ROCHE-1649465

PATIENT
  Age: 76 Year
  Sex: Male

DRUGS (2)
  1. ESBRIET [Suspect]
     Active Substance: PIRFENIDONE
     Indication: PULMONARY FIBROSIS
     Route: 048
     Dates: start: 20151012, end: 20151020
  2. ESBRIET [Suspect]
     Active Substance: PIRFENIDONE
     Route: 048
     Dates: end: 20151023

REACTIONS (5)
  - Decreased appetite [Unknown]
  - Dyspnoea [Unknown]
  - Dysphagia [Unknown]
  - Dehydration [Unknown]
  - Asthenia [Unknown]

NARRATIVE: CASE EVENT DATE: 20151012
